FAERS Safety Report 8955634 (Version 2)
Quarter: 2013Q3

REPORT INFORMATION
  Report Type: Spontaneous
  Country: JP (occurrence: JP)
  Receive Date: 20121207
  Receipt Date: 20130715
  Transmission Date: 20140515
  Serious: Yes (Hospitalization)
  Sender: FDA-Public Use
  Company Number: JP-ROCHE-1163913

PATIENT
  Age: 58 Year
  Sex: Male
  Weight: 60 kg

DRUGS (2)
  1. PEGASYS [Suspect]
     Indication: HEPATIC CIRRHOSIS
     Dosage: DOSAGE IS UNCERTAIN.
     Route: 058
     Dates: start: 20110201, end: 20110222
  2. COPEGUS [Suspect]
     Indication: HEPATIC CIRRHOSIS
     Dosage: DOSAGE IS UNCERTAIN.
     Route: 048
     Dates: start: 20110201, end: 20110228

REACTIONS (2)
  - Pneumonia [Recovering/Resolving]
  - Infectious pleural effusion [Recovering/Resolving]
